FAERS Safety Report 6854387-0 (Version None)
Quarter: 2010Q3

REPORT INFORMATION
  Report Type: 
  Country: None (occurrence: None)
  Receive Date: 20100717
  Receipt Date: 20080107
  Transmission Date: 20110219
  Serious: No
  Sender: FDA-Public Use
  Company Number: US-PFIZER INC-2008003624

PATIENT
  Sex: Female
  Weight: 40.909 kg

DRUGS (4)
  1. CHANTIX [Suspect]
     Indication: SMOKING CESSATION THERAPY
     Dates: start: 20070901
  2. LEVOTHYROXINE SODIUM [Concomitant]
  3. AMLODIPINE [Concomitant]
     Indication: BLOOD PRESSURE ABNORMAL
  4. LEXAPRO [Concomitant]

REACTIONS (2)
  - MALAISE [None]
  - VOMITING [None]
